FAERS Safety Report 8962194 (Version 2)
Quarter: 2013Q1

REPORT INFORMATION
  Report Type: Spontaneous
  Country: US (occurrence: US)
  Receive Date: 20121212
  Receipt Date: 20130118
  Transmission Date: 20140127
  Serious: No
  Sender: FDA-Public Use
  Company Number: US-PFIZER INC-2012308794

PATIENT
  Age: 33 Year
  Sex: Male
  Weight: 97.51 kg

DRUGS (2)
  1. VIAGRA [Suspect]
     Indication: ERECTILE DYSFUNCTION
     Dosage: 50 MG, AS NEEDED
     Route: 048
  2. CLONAZEPAM [Concomitant]
     Dosage: UNK

REACTIONS (2)
  - Cough [Unknown]
  - Headache [Unknown]
